FAERS Safety Report 9955113 (Version 1)
Quarter: 2014Q1

REPORT INFORMATION
  Report Type: Spontaneous
  Country: US (occurrence: US)
  Receive Date: 20140304
  Receipt Date: 20140304
  Transmission Date: 20141002
  Serious: No
  Sender: FDA-Public Use
  Company Number: US-ABBVIE-13P-163-1075338-00

PATIENT
  Age: 25 Year
  Sex: Female
  Weight: 56.3 kg

DRUGS (4)
  1. HUMIRA [Suspect]
     Indication: COLITIS ULCERATIVE
     Route: 058
     Dates: start: 201210, end: 201210
  2. HUMIRA [Suspect]
     Route: 058
     Dates: start: 201210, end: 201210
  3. HUMIRA [Suspect]
     Route: 058
     Dates: start: 201211
  4. UNKNOWN MEDICATION [Concomitant]
     Indication: CONTRACEPTION

REACTIONS (3)
  - Injection site pain [Not Recovered/Not Resolved]
  - Injection site pruritus [Not Recovered/Not Resolved]
  - Injection site haemorrhage [Unknown]
